FAERS Safety Report 4358870-1 (Version None)
Quarter: 2004Q2

REPORT INFORMATION
  Report Type: 
  Country: None (occurrence: None)
  Receive Date: 20040512
  Receipt Date: 20040416
  Transmission Date: 20050107
  Serious: Yes (Other)
  Sender: FDA-Public Use
  Company Number: JP_040403043

PATIENT
  Sex: Male

DRUGS (4)
  1. EXAL (VINBLASTINE SULFATE) [Suspect]
     Indication: TESTICULAR NEOPLASM
     Dosage: 0.3 MG/KG
  2. CISPLATIN [Concomitant]
  3. BLEO (BLEOMYCIN HYDROCHLORIDE) [Concomitant]
  4. SAXIZON (HYDROCORTISONE SODIUM SUCCINATE0 [Concomitant]

REACTIONS (2)
  - SCOTOMA [None]
  - VISUAL DISTURBANCE [None]
